FAERS Safety Report 15862072 (Version 2)
Quarter: 2019Q1

REPORT INFORMATION
  Report Type: Report from Study
  Country: SA (occurrence: SA)
  Receive Date: 20190124
  Receipt Date: 20190215
  Transmission Date: 20190417
  Serious: Yes (Hospitalization, Other)
  Sender: FDA-Public Use
  Company Number: PHHY2019SA010249

PATIENT
  Age: 60 Year
  Sex: Female
  Weight: 68 kg

DRUGS (20)
  1. SODIUM PHOSPHATE [Concomitant]
     Active Substance: SODIUM PHOSPHATE
     Indication: HYPOPHOSPHATAEMIA
     Dosage: 15 MMOL (TO RUN FOR 3 HOURS)
     Route: 042
  2. PKC412 [Suspect]
     Active Substance: MIDOSTAURIN
     Indication: ACUTE MYELOID LEUKAEMIA
     Dosage: 50 MG, BID
     Route: 048
     Dates: start: 20181214
  3. PKC412 [Suspect]
     Active Substance: MIDOSTAURIN
     Dosage: 50 MG, BID
     Route: 048
     Dates: start: 20181224
  4. OMEPRAZOLE. [Concomitant]
     Active Substance: OMEPRAZOLE
     Indication: ABDOMINAL PAIN UPPER
     Dosage: 20 MG, QD
     Route: 048
  5. CYTARABINE. [Concomitant]
     Active Substance: CYTARABINE
     Indication: PRODUCT USED FOR UNKNOWN INDICATION
     Dosage: 155 MG, (3+7 INDUCTION)
     Route: 042
  6. DOCUSATE [Concomitant]
     Active Substance: DOCUSATE
     Indication: CONSTIPATION
     Dosage: 10 MG, BID
     Route: 065
  7. MAALOX ANTACID [Concomitant]
     Active Substance: ALUMINUM HYDROXIDE\DIMETHICONE\MAGNESIUM HYDROXIDE
     Indication: ABDOMINAL PAIN UPPER
     Dosage: 10 ML, TID
     Route: 065
  8. AMIODARONE [Concomitant]
     Active Substance: AMIODARONE
     Indication: TACHYCARDIA
     Dosage: 300 MG, (FOR 24 HOURS)
     Route: 042
  9. PKC412 [Suspect]
     Active Substance: MIDOSTAURIN
     Dosage: REINDUCTION 3+7+ MIDOSTAURIN
     Route: 048
     Dates: start: 20190108
  10. PKC412 [Suspect]
     Active Substance: MIDOSTAURIN
     Dosage: 50 MG, BID
     Route: 048
     Dates: start: 20190113
  11. MORPHINE [Concomitant]
     Active Substance: MORPHINE
     Indication: PAIN
     Dosage: 3 MG, PRN (Q4 HRS) AS NEEDED
     Route: 065
  12. POTASSIUM CHLORIDE. [Concomitant]
     Active Substance: POTASSIUM CHLORIDE
     Indication: HYPOKALAEMIA
     Dosage: 30 MMOL, (TO RUN FOR 3 HOURS)
     Route: 042
  13. TENOFOVIR [Concomitant]
     Active Substance: TENOFOVIR
     Indication: HEPATITIS B ANTIBODY POSITIVE
     Dosage: 300 MG, QD
     Route: 048
  14. PKC412 [Suspect]
     Active Substance: MIDOSTAURIN
     Dosage: REINDUCTION 3+7+ MIDOSTAURIN
     Route: 048
     Dates: start: 20190106
  15. GRANISETRON [Concomitant]
     Active Substance: GRANISETRON
     Indication: PROPHYLAXIS OF NAUSEA AND VOMITING
     Dosage: 1 MG, UNK
     Route: 042
  16. MAGNESIUM [Concomitant]
     Active Substance: MAGNESIUM
     Indication: HYPOMAGNESAEMIA
     Dosage: 1000 MG (TO BE INFUSED FOR 36 HOURS)
     Route: 042
  17. MEROPENEM. [Concomitant]
     Active Substance: MEROPENEM
     Indication: ANTIBIOTIC PROPHYLAXIS
     Dosage: 1000 MG, (EVERY 8 HOURS)
     Route: 042
  18. METOPROLOL. [Concomitant]
     Active Substance: METOPROLOL
     Indication: PROPHYLAXIS
     Dosage: 75 MG, BID
     Route: 048
  19. ACYCLOVIR. [Concomitant]
     Active Substance: ACYCLOVIR
     Indication: ANTIVIRAL PROPHYLAXIS
     Dosage: 200 MG, TID
     Route: 065
  20. FUROSEMIDE. [Concomitant]
     Active Substance: FUROSEMIDE
     Indication: PROPHYLAXIS
     Dosage: 20 MG, UNK
     Route: 042

REACTIONS (14)
  - Platelet count decreased [Unknown]
  - Red blood cell count decreased [Unknown]
  - Blood sodium decreased [Unknown]
  - Blood uric acid decreased [Unknown]
  - Electrocardiogram QT prolonged [Recovered/Resolved]
  - Supraventricular tachycardia [Not Recovered/Not Resolved]
  - Haematocrit decreased [Unknown]
  - Blood creatinine decreased [Unknown]
  - Hepatitis B core antibody positive [Not Recovered/Not Resolved]
  - Haemoglobin decreased [Unknown]
  - Neutropenia [Not Recovered/Not Resolved]
  - Atrial fibrillation [Unknown]
  - White blood cell count decreased [Unknown]
  - Blood urea decreased [Unknown]

NARRATIVE: CASE EVENT DATE: 20180125
